FAERS Safety Report 8849054 (Version 1)
Quarter: 2012Q4

REPORT INFORMATION
  Report Type: Spontaneous
  Country: US (occurrence: None)
  Receive Date: 20121017
  Receipt Date: 20121017
  Transmission Date: 20130627
  Serious: Yes (Other)
  Sender: FDA-Public Use
  Company Number: None

PATIENT
  Age: 41 Year
  Sex: Male
  Weight: 83.92 kg

DRUGS (1)
  1. WELLBUTRIN SR [Suspect]

REACTIONS (4)
  - Product substitution issue [None]
  - Depression [None]
  - Lethargy [None]
  - Product quality issue [None]
